FAERS Safety Report 7718581-9 (Version None)
Quarter: 2011Q3

REPORT INFORMATION
  Report Type: 
  Country: None (occurrence: None)
  Receive Date: 20110830
  Receipt Date: 20110816
  Transmission Date: 20111222
  Serious: Yes (Hospitalization, Other)
  Sender: FDA-Public Use
  Company Number: US-ELI_LILLY_AND_COMPANY-US201107005026

PATIENT
  Age: 67 Year
  Sex: Female

DRUGS (1)
  1. FORTEO [Suspect]
     Indication: OSTEOPOROSIS
     Dosage: UNK, UNKNOWN

REACTIONS (8)
  - BLOOD PRESSURE DECREASED [None]
  - NAUSEA [None]
  - HEPATIC ENZYME INCREASED [None]
  - ABDOMINAL PAIN LOWER [None]
  - CEREBROVASCULAR ACCIDENT [None]
  - IRRITABLE BOWEL SYNDROME [None]
  - MALAISE [None]
  - BACK PAIN [None]
